FAERS Safety Report 21524607 (Version 1)
Quarter: 2022Q4

REPORT INFORMATION
  Report Type: Spontaneous
  Country: US (occurrence: US)
  Receive Date: 20221030
  Receipt Date: 20221030
  Transmission Date: 20230113
  Serious: No
  Sender: FDA-Public Use
  Company Number: US-SA-SAC20221021001369

PATIENT
  Age: 73 Year
  Sex: Female

DRUGS (2)
  1. DUPIXENT [Suspect]
     Active Substance: DUPILUMAB
     Indication: Nasal polyps
     Dosage: UNK
     Route: 058
     Dates: start: 202209
  2. ACTOS [Concomitant]
     Active Substance: PIOGLITAZONE HYDROCHLORIDE
     Indication: Diabetes mellitus

REACTIONS (6)
  - Nasal congestion [Recovering/Resolving]
  - Dry mouth [Recovering/Resolving]
  - Discomfort [Recovering/Resolving]
  - Anosmia [Recovering/Resolving]
  - Sinusitis [Recovering/Resolving]
  - Dry eye [Recovering/Resolving]
